FAERS Safety Report 6781317-2 (Version None)
Quarter: 2010Q2

REPORT INFORMATION
  Report Type: 
  Country: None (occurrence: None)
  Receive Date: 20100621
  Receipt Date: 20100610
  Transmission Date: 20101027
  Serious: Yes (Other)
  Sender: FDA-Public Use
  Company Number: PHHY2010BR37952

PATIENT
  Sex: Male

DRUGS (11)
  1. EXELON [Suspect]
     Indication: DEMENTIA ALZHEIMER'S TYPE
     Dosage: 3 MG, UNK
     Dates: start: 20040101
  2. EXELON [Suspect]
     Dosage: 4.5 MG, BID
     Dates: start: 20060101
  3. EXELON [Suspect]
     Dosage: 6 MG, UNK
  4. EXELON [Suspect]
     Dosage: 4.5 MG, BID
  5. EXELON [Suspect]
     Dosage: 6 MG, UNK
  6. EXELON [Suspect]
     Dosage: 4.5 MG, BID
  7. BROMAZEPAM [Concomitant]
     Dosage: 3 MG, 1 TABLET AT NIGHT
  8. BROMAZEPAM [Concomitant]
     Dosage: 3 MG, HALF TABLET PER DAY
  9. MEMANTINE HCL [Concomitant]
     Dosage: 10 MG, 1 TABLET PER DAY
     Dates: start: 20080101
  10. DEPAXAN [Concomitant]
     Dosage: 0.20 MG, 1 TABLET PER DAY
  11. RISPERIDONE [Concomitant]
     Dosage: 1 MG, 1 TABLET AT NIGHT

REACTIONS (6)
  - AGITATION [None]
  - DEHYDRATION [None]
  - DYSPHAGIA [None]
  - FEELING ABNORMAL [None]
  - LETHARGY [None]
  - SALIVARY HYPERSECRETION [None]
